FAERS Safety Report 25462422 (Version 1)
Quarter: 2025Q2

REPORT INFORMATION
  Report Type: Other
  Country: CA (occurrence: CA)
  Receive Date: 20250620
  Receipt Date: 20250620
  Transmission Date: 20250717
  Serious: Yes (Death, Life-Threatening, Hospitalization, Disabling, Other)
  Sender: APOTEX
  Company Number: CA-PGRTD-E2B_07715749

PATIENT
  Age: 80 Year
  Sex: Male
  Weight: 69 kg

DRUGS (138)
  1. ALLOPURINOL [Suspect]
     Active Substance: ALLOPURINOL
     Indication: Blood uric acid increased
     Route: 065
  2. ALLOPURINOL [Suspect]
     Active Substance: ALLOPURINOL
     Indication: Intentional product misuse
     Route: 048
  3. ALLOPURINOL [Suspect]
     Active Substance: ALLOPURINOL
     Indication: Off label use
     Route: 048
  4. ALLOPURINOL [Suspect]
     Active Substance: ALLOPURINOL
     Route: 048
  5. ALLOPURINOL [Suspect]
     Active Substance: ALLOPURINOL
     Route: 065
  6. GABAPENTIN [Suspect]
     Active Substance: GABAPENTIN
     Indication: Neuralgia
     Route: 065
  7. GABAPENTIN [Suspect]
     Active Substance: GABAPENTIN
     Indication: Intentional product misuse
     Route: 048
  8. GABAPENTIN [Suspect]
     Active Substance: GABAPENTIN
     Indication: Off label use
     Route: 048
  9. GABAPENTIN [Suspect]
     Active Substance: GABAPENTIN
     Route: 048
  10. GABAPENTIN [Suspect]
     Active Substance: GABAPENTIN
     Route: 048
  11. FLUTICASONE [Suspect]
     Active Substance: FLUTICASONE
     Indication: Nutritional supplementation
     Route: 065
  12. FLUTICASONE [Suspect]
     Active Substance: FLUTICASONE
     Route: 065
  13. METRONIDAZOLE [Suspect]
     Active Substance: METRONIDAZOLE
     Indication: Bacterial infection
     Route: 048
  14. METRONIDAZOLE [Suspect]
     Active Substance: METRONIDAZOLE
     Route: 065
  15. METRONIDAZOLE [Suspect]
     Active Substance: METRONIDAZOLE
     Route: 048
  16. METRONIDAZOLE [Suspect]
     Active Substance: METRONIDAZOLE
     Route: 048
  17. METRONIDAZOLE [Suspect]
     Active Substance: METRONIDAZOLE
     Route: 065
  18. METRONIDAZOLE [Suspect]
     Active Substance: METRONIDAZOLE
     Route: 065
  19. METRONIDAZOLE [Suspect]
     Active Substance: METRONIDAZOLE
     Route: 048
  20. METRONIDAZOLE [Suspect]
     Active Substance: METRONIDAZOLE
     Route: 065
  21. METRONIDAZOLE [Suspect]
     Active Substance: METRONIDAZOLE
     Route: 048
  22. POTASSIUM CHLORIDE [Suspect]
     Active Substance: POTASSIUM CHLORIDE
     Indication: Constipation
     Route: 065
  23. POTASSIUM CHLORIDE [Suspect]
     Active Substance: POTASSIUM CHLORIDE
     Route: 048
  24. ALBUTEROL [Suspect]
     Active Substance: ALBUTEROL
     Indication: Chronic obstructive pulmonary disease
  25. ALBUTEROL [Suspect]
     Active Substance: ALBUTEROL
     Indication: Intentional product misuse
  26. ALBUTEROL [Suspect]
     Active Substance: ALBUTEROL
     Indication: Off label use
     Route: 065
  27. ALBUTEROL [Suspect]
     Active Substance: ALBUTEROL
     Route: 065
  28. ALBUTEROL [Suspect]
     Active Substance: ALBUTEROL
  29. ALBUTEROL [Suspect]
     Active Substance: ALBUTEROL
     Route: 065
  30. ALBUTEROL [Suspect]
     Active Substance: ALBUTEROL
     Route: 065
  31. ALBUTEROL [Suspect]
     Active Substance: ALBUTEROL
  32. ALBUTEROL [Suspect]
     Active Substance: ALBUTEROL
  33. ALBUTEROL [Suspect]
     Active Substance: ALBUTEROL
     Route: 065
  34. ALBUTEROL [Suspect]
     Active Substance: ALBUTEROL
     Route: 065
  35. ALBUTEROL [Suspect]
     Active Substance: ALBUTEROL
  36. ALBUTEROL [Suspect]
     Active Substance: ALBUTEROL
     Route: 065
  37. ALBUTEROL [Suspect]
     Active Substance: ALBUTEROL
     Route: 065
  38. ALBUTEROL [Suspect]
     Active Substance: ALBUTEROL
  39. ALBUTEROL [Suspect]
     Active Substance: ALBUTEROL
     Route: 065
  40. ALBUTEROL [Suspect]
     Active Substance: ALBUTEROL
  41. ALBUTEROL [Suspect]
     Active Substance: ALBUTEROL
  42. HYDROMORPHONE [Suspect]
     Active Substance: HYDROMORPHONE
     Indication: Analgesic therapy
     Route: 065
  43. HYDROMORPHONE [Suspect]
     Active Substance: HYDROMORPHONE
     Route: 065
  44. HYDROMORPHONE [Suspect]
     Active Substance: HYDROMORPHONE
     Route: 065
  45. HYDROMORPHONE [Suspect]
     Active Substance: HYDROMORPHONE
     Route: 065
  46. SIMVASTATIN [Suspect]
     Active Substance: SIMVASTATIN
     Indication: Vitamin supplementation
     Route: 065
  47. SIMVASTATIN [Suspect]
     Active Substance: SIMVASTATIN
     Indication: Blood cholesterol increased
     Route: 048
  48. SIMVASTATIN [Suspect]
     Active Substance: SIMVASTATIN
     Indication: Off label use
     Route: 048
  49. SIMVASTATIN [Suspect]
     Active Substance: SIMVASTATIN
     Route: 065
  50. THEOPHYLLINE [Suspect]
     Active Substance: THEOPHYLLINE
     Indication: Off label use
     Route: 065
  51. THEOPHYLLINE [Suspect]
     Active Substance: THEOPHYLLINE
     Indication: Intentional product misuse
     Route: 065
  52. THEOPHYLLINE [Suspect]
     Active Substance: THEOPHYLLINE
     Route: 065
  53. THEOPHYLLINE [Suspect]
     Active Substance: THEOPHYLLINE
     Route: 065
  54. THEOPHYLLINE [Suspect]
     Active Substance: THEOPHYLLINE
     Route: 065
  55. THEOPHYLLINE [Suspect]
     Active Substance: THEOPHYLLINE
     Route: 065
  56. THEOPHYLLINE [Suspect]
     Active Substance: THEOPHYLLINE
     Route: 065
  57. CEFTRIAXONE SODIUM [Suspect]
     Active Substance: CEFTRIAXONE SODIUM
     Indication: Bacterial infection
     Route: 042
  58. CEFTRIAXONE SODIUM [Suspect]
     Active Substance: CEFTRIAXONE SODIUM
     Route: 065
  59. CEFTRIAXONE SODIUM [Suspect]
     Active Substance: CEFTRIAXONE SODIUM
     Route: 065
  60. CEFTRIAXONE SODIUM [Suspect]
     Active Substance: CEFTRIAXONE SODIUM
     Route: 042
  61. DOBUTAMINE [Suspect]
     Active Substance: DOBUTAMINE HYDROCHLORIDE
     Indication: Cardiogenic shock
     Route: 042
  62. DOBUTAMINE [Suspect]
     Active Substance: DOBUTAMINE HYDROCHLORIDE
     Indication: Off label use
     Route: 042
  63. DOBUTAMINE [Suspect]
     Active Substance: DOBUTAMINE HYDROCHLORIDE
     Route: 065
  64. HEPARIN SODIUM [Suspect]
     Active Substance: HEPARIN SODIUM
     Indication: Anticoagulant therapy
     Route: 017
  65. HEPARIN SODIUM [Suspect]
     Active Substance: HEPARIN SODIUM
     Route: 065
  66. HEPARIN SODIUM [Suspect]
     Active Substance: HEPARIN SODIUM
     Route: 042
  67. HEPARIN SODIUM [Suspect]
     Active Substance: HEPARIN SODIUM
     Route: 042
  68. HEPARIN SODIUM [Suspect]
     Active Substance: HEPARIN SODIUM
     Route: 042
  69. HEPARIN SODIUM [Suspect]
     Active Substance: HEPARIN SODIUM
     Route: 042
  70. HEPARIN SODIUM [Suspect]
     Active Substance: HEPARIN SODIUM
     Route: 042
  71. HEPARIN SODIUM [Suspect]
     Active Substance: HEPARIN SODIUM
     Route: 017
  72. HEPARIN SODIUM [Suspect]
     Active Substance: HEPARIN SODIUM
     Route: 017
  73. HEPARIN SODIUM [Suspect]
     Active Substance: HEPARIN SODIUM
     Route: 017
  74. HYDROMORPHONE HYDROCHLORIDE [Suspect]
     Active Substance: HYDROMORPHONE HYDROCHLORIDE
     Indication: Intentional product misuse
     Route: 058
  75. HYDROMORPHONE HYDROCHLORIDE [Suspect]
     Active Substance: HYDROMORPHONE HYDROCHLORIDE
     Indication: Analgesic therapy
     Route: 058
  76. HYDROMORPHONE HYDROCHLORIDE [Suspect]
     Active Substance: HYDROMORPHONE HYDROCHLORIDE
     Indication: Product used for unknown indication
     Route: 058
  77. HYDROMORPHONE HYDROCHLORIDE [Suspect]
     Active Substance: HYDROMORPHONE HYDROCHLORIDE
     Indication: Off label use
     Route: 058
  78. HYDROMORPHONE HYDROCHLORIDE [Suspect]
     Active Substance: HYDROMORPHONE HYDROCHLORIDE
     Route: 058
  79. HYDROMORPHONE HYDROCHLORIDE [Suspect]
     Active Substance: HYDROMORPHONE HYDROCHLORIDE
     Route: 058
  80. HYDROMORPHONE HYDROCHLORIDE [Suspect]
     Active Substance: HYDROMORPHONE HYDROCHLORIDE
     Route: 058
  81. NOREPINEPHRINE [Suspect]
     Active Substance: NOREPINEPHRINE
     Indication: Stress
     Route: 042
  82. NOREPINEPHRINE [Suspect]
     Active Substance: NOREPINEPHRINE
     Route: 048
  83. NOREPINEPHRINE [Suspect]
     Active Substance: NOREPINEPHRINE
     Route: 065
  84. NOREPINEPHRINE [Suspect]
     Active Substance: NOREPINEPHRINE
     Route: 042
  85. NOREPINEPHRINE [Suspect]
     Active Substance: NOREPINEPHRINE
     Route: 048
  86. NOREPINEPHRINE [Suspect]
     Active Substance: NOREPINEPHRINE
     Route: 048
  87. AMIODARONE [Suspect]
     Active Substance: AMIODARONE
     Indication: Ventricular fibrillation
     Route: 065
  88. AMIODARONE [Suspect]
     Active Substance: AMIODARONE
     Indication: Intentional product misuse
     Route: 042
  89. AMIODARONE [Suspect]
     Active Substance: AMIODARONE
     Indication: Drug therapy
     Route: 042
  90. AMIODARONE [Suspect]
     Active Substance: AMIODARONE
     Indication: Off label use
     Route: 065
  91. AMIODARONE [Suspect]
     Active Substance: AMIODARONE
     Route: 042
  92. AMIODARONE [Suspect]
     Active Substance: AMIODARONE
     Route: 042
  93. LANSOPRAZOLE [Suspect]
     Active Substance: LANSOPRAZOLE
     Indication: Intentional product misuse
     Route: 048
  94. LANSOPRAZOLE [Suspect]
     Active Substance: LANSOPRAZOLE
     Indication: Antacid therapy
     Route: 048
  95. LANSOPRAZOLE [Suspect]
     Active Substance: LANSOPRAZOLE
     Indication: Off label use
     Route: 048
  96. ONDANSETRON [Suspect]
     Active Substance: ONDANSETRON
     Indication: Vomiting
     Route: 042
  97. ONDANSETRON [Suspect]
     Active Substance: ONDANSETRON
     Indication: Nausea
     Route: 065
  98. ONDANSETRON [Suspect]
     Active Substance: ONDANSETRON
     Indication: Product used for unknown indication
     Route: 065
  99. ONDANSETRON [Suspect]
     Active Substance: ONDANSETRON
     Indication: Off label use
     Route: 042
  100. ONDANSETRON [Suspect]
     Active Substance: ONDANSETRON
     Route: 042
  101. ONDANSETRON [Suspect]
     Active Substance: ONDANSETRON
     Route: 042
  102. ONDANSETRON [Suspect]
     Active Substance: ONDANSETRON
     Route: 048
  103. ONDANSETRON [Suspect]
     Active Substance: ONDANSETRON
     Route: 048
  104. ONDANSETRON [Suspect]
     Active Substance: ONDANSETRON
     Route: 042
  105. ONDANSETRON [Suspect]
     Active Substance: ONDANSETRON
     Route: 042
  106. ONDANSETRON [Suspect]
     Active Substance: ONDANSETRON
     Route: 042
  107. ONDANSETRON [Suspect]
     Active Substance: ONDANSETRON
     Route: 042
  108. ONDANSETRON [Suspect]
     Active Substance: ONDANSETRON
     Route: 042
  109. ONDANSETRON [Suspect]
     Active Substance: ONDANSETRON
     Route: 042
  110. ONDANSETRON [Suspect]
     Active Substance: ONDANSETRON
     Route: 042
  111. ONDANSETRON [Suspect]
     Active Substance: ONDANSETRON
     Route: 042
  112. ONDANSETRON [Suspect]
     Active Substance: ONDANSETRON
     Route: 042
  113. ONDANSETRON [Suspect]
     Active Substance: ONDANSETRON
     Route: 042
  114. ONDANSETRON [Suspect]
     Active Substance: ONDANSETRON
     Route: 042
  115. ONDANSETRON [Suspect]
     Active Substance: ONDANSETRON
     Route: 042
  116. ONDANSETRON [Suspect]
     Active Substance: ONDANSETRON
     Route: 042
  117. ONDANSETRON [Suspect]
     Active Substance: ONDANSETRON
     Route: 042
  118. ONDANSETRON [Suspect]
     Active Substance: ONDANSETRON
     Route: 042
  119. ONDANSETRON [Suspect]
     Active Substance: ONDANSETRON
     Route: 065
  120. ONDANSETRON [Suspect]
     Active Substance: ONDANSETRON
     Route: 042
  121. ONDANSETRON [Suspect]
     Active Substance: ONDANSETRON
     Route: 042
  122. ONDANSETRON [Suspect]
     Active Substance: ONDANSETRON
     Route: 042
  123. ONDANSETRON [Suspect]
     Active Substance: ONDANSETRON
     Route: 042
  124. ONDANSETRON [Suspect]
     Active Substance: ONDANSETRON
     Route: 042
  125. ONDANSETRON [Suspect]
     Active Substance: ONDANSETRON
     Route: 065
  126. ONDANSETRON [Suspect]
     Active Substance: ONDANSETRON
     Route: 042
  127. ONDANSETRON [Suspect]
     Active Substance: ONDANSETRON
     Route: 065
  128. SODIUM BICARBONATE [Suspect]
     Active Substance: SODIUM BICARBONATE
     Indication: Constipation
     Route: 065
  129. VASOPRESSIN [Suspect]
     Active Substance: VASOPRESSIN
     Indication: Thrombosis
     Route: 042
  130. VASOPRESSIN [Suspect]
     Active Substance: VASOPRESSIN
     Indication: Drug therapy
     Route: 065
  131. VASOPRESSIN [Suspect]
     Active Substance: VASOPRESSIN
     Route: 042
  132. VASOPRESSIN [Suspect]
     Active Substance: VASOPRESSIN
     Route: 017
  133. VASOPRESSIN [Suspect]
     Active Substance: VASOPRESSIN
     Route: 065
  134. VASOPRESSIN [Suspect]
     Active Substance: VASOPRESSIN
     Route: 042
  135. VITAMIN C [Suspect]
     Active Substance: ASCORBIC ACID
     Indication: Constipation
     Route: 048
  136. VITAMIN K1 [Suspect]
     Active Substance: PHYTONADIONE
     Indication: Vitamin supplementation
     Route: 042
  137. VITAMIN K1 [Suspect]
     Active Substance: PHYTONADIONE
     Route: 065
  138. VITAMIN K1 [Suspect]
     Active Substance: PHYTONADIONE
     Route: 042

REACTIONS (8)
  - Ascites [Fatal]
  - Bacterial infection [Fatal]
  - Blood cholesterol increased [Fatal]
  - Chronic obstructive pulmonary disease [Fatal]
  - Condition aggravated [Fatal]
  - Appendicitis [Fatal]
  - Constipation [Fatal]
  - Appendicolith [Fatal]
